FAERS Safety Report 25622765 (Version 2)
Quarter: 2025Q3

REPORT INFORMATION
  Report Type: Spontaneous
  Country: AU (occurrence: AU)
  Receive Date: 20250730
  Receipt Date: 20250909
  Transmission Date: 20251021
  Serious: Yes (Hospitalization)
  Sender: MERCK SHARP & DOHME LLC
  Company Number: AU-009507513-2311350

PATIENT
  Age: 62 Year
  Sex: Female

DRUGS (2)
  1. PEMBROLIZUMAB [Suspect]
     Active Substance: PEMBROLIZUMAB
     Indication: Metastatic renal cell carcinoma
     Route: 042
     Dates: start: 20240430, end: 20250217
  2. THYROXINE [Concomitant]
     Active Substance: LEVOTHYROXINE
     Indication: Hypothyroidism
     Route: 048
     Dates: start: 20240429

REACTIONS (5)
  - Sepsis [Recovered/Resolved]
  - Off label use [Unknown]
  - Tonsillitis [Recovered/Resolved]
  - Neutropenia [Recovered/Resolved]
  - Aspiration bone marrow abnormal [Unknown]
